FAERS Safety Report 8771848 (Version 1)
Quarter: 2012Q4

REPORT INFORMATION
  Report Type: 
  Country: US (occurrence: US)
  Receive Date: 20120905
  Receipt Date: 20120905
  Transmission Date: 20130627
  Serious: No
  Sender: FDA-Public Use
  Company Number: US-ASTRAZENECA-2012SE60426

PATIENT
  Age: 67 Year
  Sex: Female

DRUGS (2)
  1. PULMICORT RESPULES [Suspect]
     Route: 055
  2. PULMICORT RESPULES [Suspect]
     Dosage: GENERIC
     Route: 055

REACTIONS (3)
  - Increased upper airway secretion [Unknown]
  - Drug effect incomplete [Unknown]
  - Off label use [Unknown]
